FAERS Safety Report 5328750-3 (Version None)
Quarter: 2007Q2

REPORT INFORMATION
  Report Type: 
  Country: None (occurrence: None)
  Receive Date: 20070516
  Receipt Date: 20070516
  Transmission Date: 20071010
  Serious: Yes (Hospitalization)
  Sender: FDA-Public Use
  Company Number: None

PATIENT
  Age: 85 Year
  Sex: Male
  Weight: 75 kg

DRUGS (8)
  1. ASPIRIN [Suspect]
     Indication: VASCULAR BYPASS GRAFT
     Dosage: 81 MG DAILY PO
     Route: 048
     Dates: start: 19800101
  2. LORAZEPAM [Concomitant]
  3. FUROSEMIDE [Concomitant]
  4. LEXAPRO [Concomitant]
  5. THEOPHYLLINE [Concomitant]
  6. DIOVAN [Concomitant]
  7. TERAZOSIN HCL [Concomitant]
  8. LIPITOR [Concomitant]

REACTIONS (16)
  - ASTHENIA [None]
  - CEREBRAL ATROPHY [None]
  - CEREBRAL HAEMATOMA [None]
  - CEREBRAL ISCHAEMIA [None]
  - CONSTIPATION [None]
  - CONTUSION [None]
  - DIZZINESS [None]
  - DYSPNOEA EXERTIONAL [None]
  - FALL [None]
  - GASTRIC HAEMORRHAGE [None]
  - GASTRITIS EROSIVE [None]
  - HAEMATOMA [None]
  - HEAD INJURY [None]
  - LACERATION [None]
  - PLATELET COUNT DECREASED [None]
  - SUBARACHNOID HAEMORRHAGE [None]
